FAERS Safety Report 7466108-1 (Version None)
Quarter: 2011Q2

REPORT INFORMATION
  Report Type: 
  Country: None (occurrence: None)
  Receive Date: 20110509
  Receipt Date: 20110503
  Transmission Date: 20111010
  Serious: Yes (Other)
  Sender: FDA-Public Use
  Company Number: HR-ABBOTT-11P-216-0723345-00

PATIENT
  Age: 21 Year
  Sex: Male

DRUGS (3)
  1. DEPAKENE [Suspect]
     Indication: EPILEPSY
     Dosage: FILM-COATED
     Route: 048
     Dates: start: 20100501
  2. METHY [Suspect]
     Indication: EPILEPSY
     Route: 048
     Dates: start: 20100501
  3. OXCARBAZEPINE [Suspect]
     Indication: EPILEPSY
     Route: 048
     Dates: start: 20100501

REACTIONS (2)
  - PARTIAL SEIZURES [None]
  - GAMMA-GLUTAMYLTRANSFERASE INCREASED [None]
